FAERS Safety Report 10679797 (Version 2)
Quarter: 2015Q3

REPORT INFORMATION
  Report Type: Spontaneous
  Country: US (occurrence: US)
  Receive Date: 20141229
  Receipt Date: 20150727
  Transmission Date: 20151125
  Serious: Yes (Other)
  Sender: FDA-Public Use
  Company Number: US-TAKEDA-2014TUS014684

PATIENT
  Age: 44 Year
  Sex: Female
  Weight: 89.8 kg

DRUGS (13)
  1. IMURAN [Concomitant]
     Active Substance: AZATHIOPRINE
     Dosage: 50 MG TABLET AS DIRECTED
  2. PREDNISONE. [Concomitant]
     Active Substance: PREDNISONE
     Dosage: UNK, (40 MG CAPSULE AS DIRECTED DAILY)
  3. PROMETHAZINE HCL [Concomitant]
     Active Substance: PROMETHAZINE HYDROCHLORIDE
     Dosage: UNK
  4. PREDNISONE. [Concomitant]
     Active Substance: PREDNISONE
     Dosage: UNK, (10 MG TABLET AS DIRECTED DAILY)
  5. SIMPONI [Concomitant]
     Active Substance: GOLIMUMAB
     Dosage: UNK, Q4WEEKS
     Route: 058
  6. NORCO [Concomitant]
     Active Substance: ACETAMINOPHEN\HYDROCODONE BITARTRATE
  7. PREDNISONE. [Concomitant]
     Active Substance: PREDNISONE
     Dosage: UNK, (1 MG TABLET AS DIRECTED Q8H)
  8. IMURAN [Concomitant]
     Active Substance: AZATHIOPRINE
     Indication: CROHN^S DISEASE
     Dosage: 100 MG, QD
     Route: 048
     Dates: start: 2011
  9. PROCTOSOL HC [Concomitant]
     Dosage: 1 DF, BID
  10. PROTONIX [Concomitant]
     Active Substance: PANTOPRAZOLE SODIUM
     Indication: GASTROOESOPHAGEAL REFLUX DISEASE
     Dosage: 1 DF, QD
     Route: 048
     Dates: start: 2009
  11. CELEXA [Concomitant]
     Active Substance: CITALOPRAM HYDROBROMIDE
     Dosage: UNK
  12. ENTYVIO [Suspect]
     Active Substance: VEDOLIZUMAB
     Indication: CROHN^S DISEASE
     Dosage: 300 MG, UNK
     Route: 042
     Dates: start: 201409, end: 2014
  13. BUDESONIDE ER [Concomitant]
     Dosage: (3 QAM)

REACTIONS (4)
  - Crohn^s disease [Unknown]
  - Pustular psoriasis [Not Recovered/Not Resolved]
  - Drug ineffective [Unknown]
  - Blister [Unknown]

NARRATIVE: CASE EVENT DATE: 20141022
